FAERS Safety Report 12446656 (Version 1)
Quarter: 2016Q2

REPORT INFORMATION
  Report Type: Report from Study
  Country: KR (occurrence: KR)
  Receive Date: 20160608
  Receipt Date: 20160608
  Transmission Date: 20160815
  Serious: Yes (Death, Other)
  Sender: FDA-Public Use
  Company Number: KR-ACCORD-041293

PATIENT

DRUGS (7)
  1. NYSTATIN/NYSTATIN/LIPOSOME [Concomitant]
     Indication: PROPHYLAXIS
     Route: 048
  2. MYCOPHENOLIC ACID. [Suspect]
     Active Substance: MYCOPHENOLIC ACID
     Indication: RENAL TRANSPLANT
  3. TACROLIMUS. [Suspect]
     Active Substance: TACROLIMUS
     Indication: RENAL TRANSPLANT
     Route: 048
  4. METHYLPREDNISOLONE. [Suspect]
     Active Substance: METHYLPREDNISOLONE
     Indication: RENAL TRANSPLANT
     Dosage: 500-1000 MG
  5. SULFAMETHOXAZOLE/TRIMETHOPRIM [Concomitant]
     Indication: PNEUMOCYSTIS JIROVECII PNEUMONIA
  6. BASILIXIMAB [Suspect]
     Active Substance: BASILIXIMAB
     Indication: PRODUCT USED FOR UNKNOWN INDICATION
     Dosage: ON DAYS 0 AND 4
  7. RITUXIMAB [Suspect]
     Active Substance: RITUXIMAB
     Indication: RENAL TRANSPLANT

REACTIONS (2)
  - Hepatitis B [Unknown]
  - Hepatic failure [Fatal]
